FAERS Safety Report 6772026-4 (Version None)
Quarter: 2010Q2

REPORT INFORMATION
  Report Type: 
  Country: None (occurrence: None)
  Receive Date: 20100616
  Receipt Date: 20100611
  Transmission Date: 20101027
  Serious: Yes (Hospitalization)
  Sender: FDA-Public Use
  Company Number: HQWYE385903AUG07

PATIENT
  Sex: Female

DRUGS (10)
  1. INIPOMP [Suspect]
     Indication: CHOLECYSTITIS ACUTE
     Route: 048
     Dates: start: 20070602, end: 20070603
  2. INIPOMP [Suspect]
     Route: 048
     Dates: start: 20070605, end: 20070606
  3. NALBUPHINE HYDROCHLORIDE [Suspect]
     Indication: CHOLECYSTITIS
     Dosage: ^DF^ UNSPECIFIED FREQUENCY
     Route: 042
     Dates: start: 20070602, end: 20070606
  4. ROCEPHIN [Suspect]
     Indication: CHOLECYSTITIS
     Route: 042
     Dates: start: 20070604, end: 20070605
  5. PARACETAMOL [Concomitant]
     Indication: CHOLECYSTITIS
     Route: 042
     Dates: start: 20070602
  6. PRIMPERAN [Concomitant]
     Indication: CHOLECYSTITIS
     Dosage: DF UNSPECIFIED FREQUENCY
     Route: 042
     Dates: start: 20070604, end: 20070604
  7. MOPRAL [Concomitant]
     Indication: CHOLECYSTITIS
     Route: 048
     Dates: start: 20070604, end: 20070604
  8. PROFENID [Concomitant]
     Indication: CHOLECYSTITIS
     Dosage: DF UNKNOWN FREQUENCY
     Route: 042
     Dates: start: 20070602, end: 20070602
  9. METRONIDAZOLE [Suspect]
     Indication: CHOLECYSTITIS
     Route: 042
     Dates: start: 20070604, end: 20070606
  10. SPASFON [Concomitant]
     Indication: CHOLECYSTITIS
     Route: 042
     Dates: start: 20070602

REACTIONS (2)
  - DRUG EXPOSURE DURING PREGNANCY [None]
  - NEUTROPENIA [None]
